FAERS Safety Report 23665926 (Version 1)
Quarter: 2024Q1

REPORT INFORMATION
  Report Type: Spontaneous
  Country: US (occurrence: US)
  Receive Date: 20240323
  Receipt Date: 20240323
  Transmission Date: 20240409
  Serious: Yes (Life-Threatening, Hospitalization, Other)
  Sender: FDA-Public Use
  Company Number: US-TEVA-VS-3173511

PATIENT
  Age: 28 Year
  Sex: Female

DRUGS (1)
  1. DOXORUBICIN [Suspect]
     Active Substance: DOXORUBICIN
     Indication: Product used for unknown indication
     Route: 065

REACTIONS (1)
  - Dilated cardiomyopathy [Recovering/Resolving]
